FAERS Safety Report 7932778-4 (Version None)
Quarter: 2011Q4

REPORT INFORMATION
  Report Type: 
  Country: None (occurrence: None)
  Receive Date: 20111122
  Receipt Date: 20111115
  Transmission Date: 20120403
  Serious: Yes (Other)
  Sender: FDA-Public Use
  Company Number: GB-UCBSA-044861

PATIENT
  Age: 59 Year
  Sex: Female

DRUGS (1)
  1. CIMZIA [Suspect]
     Route: 058
     Dates: start: 20110501, end: 20111026

REACTIONS (5)
  - HILAR LYMPHADENOPATHY [None]
  - PANNICULITIS [None]
  - SYNOVITIS [None]
  - RASH [None]
  - SARCOIDOSIS [None]
